FAERS Safety Report 15902590 (Version 1)
Quarter: 2019Q1

REPORT INFORMATION
  Report Type: Report from Study
  Country: None (occurrence: RO)
  Receive Date: 20190201
  Receipt Date: 20190201
  Transmission Date: 20190417
  Serious: Yes (Other)
  Sender: FDA-Public Use
  Company Number: RO-ABBVIE-19S-135-2642131-00

PATIENT
  Age: 76 Year
  Sex: Male

DRUGS (1)
  1. DUODOPA [Suspect]
     Active Substance: CARBIDOPA\LEVODOPA
     Indication: PARKINSON^S DISEASE
     Dosage: DM=8.00 DC=3.90 ED=1.80 NRED=0; DMN=0.00 DCN=0.00 EDN=0.00 NREDN=0
     Route: 050
     Dates: start: 20161219

REACTIONS (6)
  - Skeletal injury [Unknown]
  - Femoral neck fracture [Recovering/Resolving]
  - Device dislocation [Unknown]
  - Device connection issue [Unknown]
  - Dyskinesia [Unknown]
  - Fall [Unknown]

NARRATIVE: CASE EVENT DATE: 20190124
